FAERS Safety Report 22238524 (Version 1)
Quarter: 2023Q2

REPORT INFORMATION
  Report Type: Spontaneous
  Country: US (occurrence: US)
  Receive Date: 20230421
  Receipt Date: 20230421
  Transmission Date: 20230721
  Serious: No
  Sender: FDA-Public Use
  Company Number: US-AIMMUNE THERAPEUTICS, INC.-2023AIMT00342

PATIENT

DRUGS (9)
  1. PALFORZIA [Suspect]
     Active Substance: PEANUT
     Indication: Food allergy
     Dosage: IDE (0.5-6MG), ONCE
     Route: 048
     Dates: start: 20221130, end: 20221130
  2. PALFORZIA [Suspect]
     Active Substance: PEANUT
     Dosage: 40 MG, 1X/DAY
     Route: 048
     Dates: start: 20230210, end: 20230302
  3. PALFORZIA [Suspect]
     Active Substance: PEANUT
     Dosage: 40 MG, ONCE, LAST DOSE PRIOR ONSET OF INTERMITTENT NAUSEA AND ABDOMINAL PAIN
     Route: 048
  4. PALFORZIA [Suspect]
     Active Substance: PEANUT
     Dosage: 80 MG, 1X/DAY
     Route: 048
     Dates: start: 20230303, end: 20230316
  5. PALFORZIA [Suspect]
     Active Substance: PEANUT
     Dosage: 80 MG, ONCE,  LAST DOSE PRIOR ONSET OF INTERMITTENT NAUSEA AND ABDOMINAL PAIN
     Route: 048
     Dates: start: 202303, end: 202303
  6. PALFORZIA [Suspect]
     Active Substance: PEANUT
     Dosage: 80 MG, ONCE, LAST DOSE PRIOR ONSET OF LIP TINGLING
     Route: 048
     Dates: start: 20230303, end: 20230303
  7. PALFORZIA [Suspect]
     Active Substance: PEANUT
     Dosage: 120 MG, 1X/DAY
     Route: 048
     Dates: start: 20230317
  8. PALFORZIA [Suspect]
     Active Substance: PEANUT
     Dosage: 120 MG, ONCE,  LAST DOSE PRIOR ONSET OF LIP TINGLING
     Route: 048
     Dates: start: 202303, end: 202303
  9. PALFORZIA [Suspect]
     Active Substance: PEANUT
     Dosage: 120 MG, 1X/DAY, DOSE RESTARTED
     Route: 048

REACTIONS (3)
  - Nausea [Not Recovered/Not Resolved]
  - Abdominal pain [Not Recovered/Not Resolved]
  - Paraesthesia oral [Recovered/Resolved]

NARRATIVE: CASE EVENT DATE: 20230303
